FAERS Safety Report 21028629 (Version 1)
Quarter: 2022Q2

REPORT INFORMATION
  Report Type: Spontaneous
  Country: CN (occurrence: None)
  Receive Date: 20220630
  Receipt Date: 20220630
  Transmission Date: 20220720
  Serious: Yes (Other)
  Sender: FDA-Public Use
  Company Number: CN-ROCHE-3126211

PATIENT
  Age: 58 Year
  Sex: Female
  Weight: 55 kg

DRUGS (2)
  1. XELODA [Suspect]
     Active Substance: CAPECITABINE
     Indication: Rectal cancer
     Route: 048
     Dates: start: 20211222, end: 20220511
  2. XELODA [Suspect]
     Active Substance: CAPECITABINE
     Indication: Metastases to lung

REACTIONS (1)
  - Skin fissures [Recovering/Resolving]

NARRATIVE: CASE EVENT DATE: 20220301
